FAERS Safety Report 21295042 (Version 1)
Quarter: 2022Q3

REPORT INFORMATION
  Report Type: Spontaneous
  Country: CH (occurrence: CH)
  Receive Date: 20220905
  Receipt Date: 20220905
  Transmission Date: 20221027
  Serious: Yes (Other)
  Sender: FDA-Public Use
  Company Number: CH-009507513-2208CHE011184

PATIENT
  Sex: Male

DRUGS (1)
  1. KEYTRUDA [Suspect]
     Active Substance: PEMBROLIZUMAB
     Indication: Lung cancer metastatic
     Dates: start: 20200604

REACTIONS (3)
  - Pulmonary embolism [Unknown]
  - Hypothyroidism [Unknown]
  - Dry mouth [Unknown]

NARRATIVE: CASE EVENT DATE: 20200901
